FAERS Safety Report 7508869-9 (Version None)
Quarter: 2011Q2

REPORT INFORMATION
  Report Type: 
  Country: None (occurrence: None)
  Receive Date: 20110527
  Receipt Date: 20110513
  Transmission Date: 20111010
  Serious: Yes (Hospitalization)
  Sender: FDA-Public Use
  Company Number: PHHY2011VE41547

PATIENT
  Sex: Female

DRUGS (5)
  1. CALCIBON D [Concomitant]
     Dosage: 300 MG, BID
  2. BATANLO [Concomitant]
     Dosage: 500 MG, HALF DOSE AT DAY
  3. CERES [Concomitant]
     Dosage: 16 MG, SOS
  4. COZAAR [Concomitant]
     Dosage: 80 MG, ONCE/SINGLE
  5. ACLASTA [Suspect]
     Indication: OSTEOPOROSIS
     Dosage: 5 MG, YEARLY
     Route: 042
     Dates: start: 20100113

REACTIONS (6)
  - LABYRINTHITIS [None]
  - EAR DISCOMFORT [None]
  - DIZZINESS [None]
  - VOMITING [None]
  - PYREXIA [None]
  - EAR PAIN [None]
